FAERS Safety Report 7333666-7 (Version None)
Quarter: 2011Q1

REPORT INFORMATION
  Report Type: 
  Country: None (occurrence: None)
  Receive Date: 20110306
  Receipt Date: 20110223
  Transmission Date: 20110831
  Serious: Yes (Hospitalization, Other)
  Sender: FDA-Public Use
  Company Number: US-ELI_LILLY_AND_COMPANY-US201008005541

PATIENT
  Sex: Female

DRUGS (4)
  1. FORTEO [Suspect]
     Indication: OSTEOPOROSIS
     Dosage: 20 UG, DAILY (1/D)
     Route: 065
     Dates: start: 20100501, end: 20100727
  2. VITAMINS NOS [Concomitant]
  3. FORTEO [Suspect]
     Dosage: 20 UG, DAILY (1/D)
     Route: 065
     Dates: start: 20100811
  4. ANTIHYPERTENSIVES [Concomitant]

REACTIONS (7)
  - URINARY TRACT INFECTION [None]
  - RIB FRACTURE [None]
  - HOSPITALISATION [None]
  - FALL [None]
  - SPINAL FRACTURE [None]
  - ACCIDENT [None]
  - DRUG DOSE OMISSION [None]
